FAERS Safety Report 8016156-8 (Version None)
Quarter: 2011Q4

REPORT INFORMATION
  Report Type: 
  Country: None (occurrence: None)
  Receive Date: 20111230
  Receipt Date: 20111219
  Transmission Date: 20120403
  Serious: Yes (Other)
  Sender: FDA-Public Use
  Company Number: US-ROCHE-794665

PATIENT
  Sex: Female
  Weight: 68.1 kg

DRUGS (2)
  1. ACCUTANE [Suspect]
     Dates: start: 19950717, end: 19980101
  2. ACCUTANE [Suspect]
     Indication: ROSACEA
     Route: 048
     Dates: start: 19950217, end: 19950608

REACTIONS (9)
  - IRRITABLE BOWEL SYNDROME [None]
  - COLITIS ULCERATIVE [None]
  - DEPRESSION [None]
  - COLONIC POLYP [None]
  - PAIN [None]
  - CONJUNCTIVITIS [None]
  - DRY SKIN [None]
  - INTESTINAL OBSTRUCTION [None]
  - ANAL FISSURE [None]
